FAERS Safety Report 4576190-7 (Version None)
Quarter: 2005Q1

REPORT INFORMATION
  Report Type: 
  Country: None (occurrence: None)
  Receive Date: 20050204
  Receipt Date: 20050121
  Transmission Date: 20050727
  Serious: Yes (Hospitalization)
  Sender: FDA-Public Use
  Company Number: 2004056277

PATIENT
  Age: 51 Year
  Sex: Female
  Weight: 56 kg

DRUGS (6)
  1. NEURONTIN [Suspect]
     Indication: NEUROPATHY PERIPHERAL
     Dosage: 100 MG (100 MG, 1 IN 1 D), ORAL
     Route: 048
     Dates: start: 20040421, end: 20040614
  2. PYRIDOXINE HCL [Suspect]
     Indication: PALMAR-PLANTAR ERYTHRODYSAESTHESIA SYNDROME
     Dosage: 750 MG (250 MG, 3 IN 1 D),
     Dates: start: 20040421
  3. ONDANSETRON HCL [Suspect]
     Indication: NAUSEA
  4. ONDANSETRON HCL [Suspect]
     Indication: VOMITING
  5. DOCETAXEL              (DOCETAXEL) [Suspect]
     Indication: NEOPLASM MALIGNANT
     Dosage: 110 MG (110 MG, 1 IN 3 WK), INTRAVENOUS
     Route: 042
     Dates: start: 20040419, end: 20040601
  6. DOXORUBICIN HYDROCHLORIDE [Suspect]
     Indication: NEOPLASM MALIGNANT
     Dosage: 70 MG (70 MG, 1 IN 3 WK), INTRAVENOUS
     Route: 042
     Dates: start: 20040419, end: 20040601

REACTIONS (26)
  - ABDOMINAL PAIN [None]
  - ABDOMINAL RIGIDITY [None]
  - ACUTE GENERALISED EXANTHEMATOUS PUSTULOSIS [None]
  - ANTINUCLEAR ANTIBODY POSITIVE [None]
  - APHTHOUS STOMATITIS [None]
  - BLOOD ALBUMIN DECREASED [None]
  - BLOOD CHLORIDE DECREASED [None]
  - BLOOD CREATININE DECREASED [None]
  - BLOOD CREATININE INCREASED [None]
  - BLOOD GLUCOSE INCREASED [None]
  - BLOOD POTASSIUM DECREASED [None]
  - BLOOD UREA DECREASED [None]
  - CATHETER RELATED INFECTION [None]
  - CLOSTRIDIAL INFECTION [None]
  - DERMATITIS BULLOUS [None]
  - DIARRHOEA [None]
  - ENTEROBACTER INFECTION [None]
  - GENERAL PHYSICAL HEALTH DETERIORATION [None]
  - NAUSEA [None]
  - OEDEMA PERIPHERAL [None]
  - PAIN IN EXTREMITY [None]
  - PCO2 DECREASED [None]
  - PROTEIN TOTAL DECREASED [None]
  - STAPHYLOCOCCAL INFECTION [None]
  - STEVENS-JOHNSON SYNDROME [None]
  - VOMITING [None]
